FAERS Safety Report 7399934-8 (Version None)
Quarter: 2011Q2

REPORT INFORMATION
  Report Type: 
  Country: None (occurrence: None)
  Receive Date: 20110407
  Receipt Date: 20110324
  Transmission Date: 20111010
  Serious: Yes (Hospitalization)
  Sender: FDA-Public Use
  Company Number: US-JNJFOC-20110310867

PATIENT
  Sex: Male
  Weight: 73.94 kg

DRUGS (3)
  1. DURAGESIC [Suspect]
     Indication: PRODUCT USED FOR UNKNOWN INDICATION
     Route: 062
  2. FENTANYL-100 [Suspect]
     Indication: BACK INJURY
     Route: 062
  3. FENTANYL CITRATE [Suspect]
     Indication: PRODUCT USED FOR UNKNOWN INDICATION
     Route: 062

REACTIONS (4)
  - SKIN LESION [None]
  - PRODUCT SUBSTITUTION ISSUE [None]
  - GENERALISED OEDEMA [None]
  - PHARYNGEAL OEDEMA [None]
